FAERS Safety Report 8049497-9 (Version None)
Quarter: 2012Q1

REPORT INFORMATION
  Report Type: 
  Country: None (occurrence: None)
  Receive Date: 20120117
  Receipt Date: 20120117
  Transmission Date: 20120608
  Serious: Yes (Death, Congenital Anomaly)
  Sender: FDA-Public Use
  Company Number: US-PFIZER INC-2012011087

PATIENT
  Sex: Male

DRUGS (2)
  1. MULTI-VITAMINS [Concomitant]
     Dosage: UNK
     Route: 064
  2. ZOLOFT [Suspect]
     Dosage: 100 MG, 3X/DAY
     Route: 064
     Dates: start: 19990101, end: 20020101

REACTIONS (5)
  - SEPSIS [None]
  - CLEFT PALATE [None]
  - MATERNAL EXPOSURE TIMING UNSPECIFIED [None]
  - SKULL MALFORMATION [None]
  - NOSE DEFORMITY [None]
